FAERS Safety Report 16010440 (Version 1)
Quarter: 2019Q1

REPORT INFORMATION
  Report Type: Report from Study
  Country: None (occurrence: CA)
  Receive Date: 20190227
  Receipt Date: 20190227
  Transmission Date: 20190418
  Serious: Yes (Hospitalization)
  Sender: FDA-Public Use
  Company Number: CA-ABBVIE-19K-028-2681187-00

PATIENT
  Sex: Female

DRUGS (1)
  1. HUMIRA [Suspect]
     Active Substance: ADALIMUMAB
     Indication: CROHN^S DISEASE
     Route: 058
     Dates: start: 20170119

REACTIONS (5)
  - Ulcer [Unknown]
  - Diarrhoea [Not Recovered/Not Resolved]
  - Nervousness [Unknown]
  - Haematochezia [Unknown]
  - Hypotension [Unknown]

NARRATIVE: CASE EVENT DATE: 2018
